FAERS Safety Report 7417388-X (Version None)
Quarter: 2011Q2

REPORT INFORMATION
  Report Type: 
  Country: None (occurrence: None)
  Receive Date: 20110415
  Receipt Date: 20110206
  Transmission Date: 20111010
  Serious: No
  Sender: FDA-Public Use
  Company Number: US-B.I. PHARMACEUTICALS,INC./RIDGEFIELD-2011-BP-03912BP

PATIENT
  Age: 79 Year
  Sex: Male

DRUGS (2)
  1. PRADAXA [Suspect]
     Indication: ATRIAL FIBRILLATION
     Dosage: 300 MG
     Route: 048
     Dates: start: 20101201
  2. LISINOPRIL [Concomitant]
     Indication: HYPERTENSION
     Dosage: 5 MG

REACTIONS (3)
  - HAEMORRHAGE [None]
  - LIMB DISCOMFORT [None]
  - CONTUSION [None]
